FAERS Safety Report 14882047 (Version 2)
Quarter: 2018Q2

REPORT INFORMATION
  Report Type: Report from Study
  Country: US (occurrence: BW)
  Receive Date: 20180511
  Receipt Date: 20180517
  Transmission Date: 20180711
  Serious: Yes (Death, Congenital Anomaly, Other)
  Sender: FDA-Public Use
  Company Number: US-VIIV HEALTHCARE LIMITED-BW2018GSK083124

PATIENT
  Age: 0 Day

DRUGS (1)
  1. DOLUTEGRAVIR [Suspect]
     Active Substance: DOLUTEGRAVIR
     Dosage: UNK
     Route: 064
     Dates: start: 20160629

REACTIONS (3)
  - Foetal death [Fatal]
  - Foetal exposure during pregnancy [Unknown]
  - Iniencephaly [Fatal]

NARRATIVE: CASE EVENT DATE: 20171019
